FAERS Safety Report 9006142 (Version 6)
Quarter: 2014Q1

REPORT INFORMATION
  Report Type: Report from Study
  Country: CA (occurrence: CA)
  Receive Date: 20130109
  Receipt Date: 20140124
  Transmission Date: 20141002
  Serious: Yes (Other)
  Sender: FDA-Public Use
  Company Number: PHHY2010CA76332

PATIENT
  Sex: Male

DRUGS (8)
  1. TASIGNA [Suspect]
     Indication: CHRONIC MYELOID LEUKAEMIA
     Dosage: 200 MG, BID
     Route: 048
     Dates: start: 20101006
  2. TASIGNA [Suspect]
     Dosage: 400 MG, BID
     Route: 048
     Dates: start: 201008, end: 201312
  3. RANITINE [Concomitant]
     Indication: GASTROOESOPHAGEAL REFLUX DISEASE
     Dosage: 150 MG, BID
  4. IRON SUPPLEMENTS [Concomitant]
     Dosage: 300 MG, QD
  5. FLOMAX MR [Concomitant]
  6. PREVACID [Concomitant]
  7. CIALIS [Concomitant]
  8. CHOLESTYRAMINE [Concomitant]

REACTIONS (8)
  - Red blood cell count decreased [Unknown]
  - Hair growth abnormal [Unknown]
  - Rhinorrhoea [Unknown]
  - Acne [Not Recovered/Not Resolved]
  - Lip dry [Unknown]
  - Alopecia [Unknown]
  - Fluid retention [Unknown]
  - Cardiac murmur [Unknown]
